FAERS Safety Report 19154885 (Version 1)
Quarter: 2021Q2

REPORT INFORMATION
  Report Type: Spontaneous
  Country: CA (occurrence: CA)
  Receive Date: 20210419
  Receipt Date: 20210419
  Transmission Date: 20210717
  Serious: Yes (Hospitalization)
  Sender: FDA-Public Use
  Company Number: NVSC2021CA084346

PATIENT
  Age: 71 Year
  Sex: Male
  Weight: 63 kg

DRUGS (2)
  1. MEKINIST [Suspect]
     Active Substance: TRAMETINIB DIMETHYL SULFOXIDE
     Indication: LUNG ADENOCARCINOMA
     Dosage: 2 MG, QD (1 EVERY 1 DAYS)
     Route: 048
  2. TAFINLAR [Suspect]
     Active Substance: DABRAFENIB MESYLATE
     Indication: LUNG ADENOCARCINOMA
     Dosage: 150 MG, BID (2 EVERY 1 DAYS)
     Route: 048

REACTIONS (1)
  - Tremor [Recovered/Resolved]
